FAERS Safety Report 18462990 (Version 1)
Quarter: 2020Q4

REPORT INFORMATION
  Report Type: Report from Study
  Country: US (occurrence: US)
  Receive Date: 20201104
  Receipt Date: 20201104
  Transmission Date: 20210114
  Serious: Yes (Death)
  Sender: FDA-Public Use
  Company Number: US-PFIZER INC-2020425511

PATIENT
  Age: 21 Year
  Sex: Female

DRUGS (5)
  1. OXYCODONE [Suspect]
     Active Substance: OXYCODONE
     Dosage: UNK
  2. FLUOXETINE [Suspect]
     Active Substance: FLUOXETINE HYDROCHLORIDE
     Dosage: UNK
  3. PROPANOLOL HCL [Suspect]
     Active Substance: PROPRANOLOL HYDROCHLORIDE
     Dosage: UNK
  4. ARIPIPRAZOLE. [Suspect]
     Active Substance: ARIPIPRAZOLE
     Dosage: UNK
  5. IBUPROFEN. [Suspect]
     Active Substance: IBUPROFEN
     Dosage: UNK

REACTIONS (18)
  - Toxicity to various agents [Fatal]
  - Depressed level of consciousness [Fatal]
  - Hypotension [Fatal]
  - Electrocardiogram QRS complex prolonged [Fatal]
  - Chemical burn [Fatal]
  - Thrombocytopenia [Fatal]
  - Pneumonia aspiration [Fatal]
  - Hypoglycaemia [Fatal]
  - Pancreatitis [Fatal]
  - Coma [Fatal]
  - Gastrointestinal haemorrhage [Fatal]
  - Acute lung injury [Fatal]
  - Acute respiratory distress syndrome [Fatal]
  - Myocardial infarction [Fatal]
  - Metabolic acidosis [Fatal]
  - Coagulopathy [Fatal]
  - Respiratory depression [Fatal]
  - Acute kidney injury [Fatal]
